FAERS Safety Report 5386207-8 (Version None)
Quarter: 2007Q3

REPORT INFORMATION
  Report Type: 
  Country: None (occurrence: None)
  Receive Date: 20070713
  Receipt Date: 20070703
  Transmission Date: 20080115
  Serious: Yes (Hospitalization)
  Sender: FDA-Public Use
  Company Number: PHHO2006CN18471

PATIENT
  Age: 33 Year
  Sex: Male

DRUGS (1)
  1. TELBIVUDINE (LDT) [Suspect]
     Indication: HEPATITIS B
     Dosage: DOUBLE BLIND
     Route: 048
     Dates: start: 20060313

REACTIONS (10)
  - ALANINE AMINOTRANSFERASE INCREASED [None]
  - DECREASED APPETITE [None]
  - DRUG RESISTANCE [None]
  - FATIGUE [None]
  - HEPATITIS [None]
  - NAUSEA [None]
  - POOR QUALITY SLEEP [None]
  - SCLERAL DISORDER [None]
  - SPIDER NAEVUS [None]
  - YELLOW SKIN [None]
